FAERS Safety Report 14822044 (Version 2)
Quarter: 2019Q2

REPORT INFORMATION
  Report Type: Spontaneous
  Country: GB (occurrence: GB)
  Receive Date: 20180427
  Receipt Date: 20190429
  Transmission Date: 20190711
  Serious: Yes (Death, Hospitalization, Other)
  Sender: FDA-Public Use
  Company Number: GB-AUROBINDO-AUR-APL-2018-022247

PATIENT

DRUGS (2)
  1. EFAVIRENZ MILPHARM FILM-COATED TABLET [Suspect]
     Active Substance: EFAVIRENZ
     Indication: HIV INFECTION
     Dosage: 1 DOSAGE FORM, ONCE A DAY
     Route: 048
     Dates: start: 20161004, end: 20171215
  2. KIVEXA [Suspect]
     Active Substance: ABACAVIR SULFATE\LAMIVUDINE
     Indication: HIV INFECTION
     Dosage: 1 DOSAGE FORM, ONCE A DAY
     Route: 048
     Dates: start: 20170418, end: 20171215

REACTIONS (4)
  - Acute hepatic failure [Unknown]
  - Jaundice [Unknown]
  - Death [Fatal]
  - Hepatic necrosis [Unknown]
